FAERS Safety Report 8824925 (Version 2)
Quarter: 2012Q4

REPORT INFORMATION
  Report Type: 
  Country: BE (occurrence: BE)
  Receive Date: 20121004
  Receipt Date: 20121126
  Transmission Date: 20130627
  Serious: Yes (Hospitalization, Other)
  Sender: FDA-Public Use
  Company Number: BE-ROCHE-1137948

PATIENT
  Age: 0 Year
  Sex: Male
  Weight: 94 kg

DRUGS (3)
  1. ROACTEMRA [Suspect]
     Indication: RHEUMATOID ARTHRITIS
     Dosage: 8 mg/kg
     Route: 042
     Dates: start: 20090914
  2. ARAVA [Concomitant]
     Route: 048
  3. PREDNISOLONE [Concomitant]
     Route: 048

REACTIONS (4)
  - Candidiasis [Unknown]
  - Erythema [Unknown]
  - Cellulitis [Recovered/Resolved]
  - Abscess [Recovered/Resolved]
